FAERS Safety Report 9096775 (Version 1)
Quarter: 2013Q1

REPORT INFORMATION
  Report Type: Spontaneous
  Country: US (occurrence: US)
  Receive Date: 20130211
  Receipt Date: 20130211
  Transmission Date: 20140127
  Serious: No
  Sender: FDA-Public Use
  Company Number: US-BAYER-2013-017799

PATIENT
  Age: 64 Year
  Sex: Male

DRUGS (2)
  1. MOXIFLOXACIN [Suspect]
     Indication: IMPLANT SITE EFFUSION
     Route: 048
  2. TRIMETOPRIM + SULFAMETOXAZOL [Concomitant]
     Route: 048

REACTIONS (2)
  - Drug ineffective [Recovered/Resolved]
  - Erythema [Recovered/Resolved]
